FAERS Safety Report 8387960-1 (Version None)
Quarter: 2012Q2

REPORT INFORMATION
  Report Type: 
  Country: None (occurrence: None)
  Receive Date: 20120525
  Receipt Date: 20120524
  Transmission Date: 20120825
  Serious: Yes (Life-Threatening, Hospitalization, Disabling)
  Sender: FDA-Public Use
  Company Number: PHHY2011DE53834

PATIENT
  Sex: Female

DRUGS (1)
  1. GILENYA [Suspect]
     Indication: MULTIPLE SCLEROSIS
     Dosage: 0.5 MG, QD
     Route: 048
     Dates: start: 20110606, end: 20110614

REACTIONS (22)
  - SOMNOLENCE [None]
  - PARTIAL SEIZURES WITH SECONDARY GENERALISATION [None]
  - DISORIENTATION [None]
  - MENTAL DISORDER [None]
  - RED BLOOD CELL COUNT DECREASED [None]
  - MUSCLE RIGIDITY [None]
  - DYSKINESIA [None]
  - GAIT SPASTIC [None]
  - CENTRAL NERVOUS SYSTEM INFLAMMATION [None]
  - LOSS OF CONSCIOUSNESS [None]
  - CONVULSION [None]
  - LYMPHOPENIA [None]
  - AURA [None]
  - WHITE BLOOD CELL COUNT INCREASED [None]
  - MUSCLE SPASMS [None]
  - MULTIPLE SCLEROSIS RELAPSE [None]
  - CENTRAL NERVOUS SYSTEM LESION [None]
  - GRAND MAL CONVULSION [None]
  - NEUROLOGICAL DECOMPENSATION [None]
  - COMPLEX PARTIAL SEIZURES [None]
  - CONFUSIONAL STATE [None]
  - HEMIPARESIS [None]
